FAERS Safety Report 9876475 (Version 2)
Quarter: 2014Q1

REPORT INFORMATION
  Report Type: Other
  Country: US (occurrence: US)
  Receive Date: 20140206
  Receipt Date: 20140206
  Transmission Date: 20141002
  Serious: No
  Sender: FDA-Public Use
  Company Number: US-ACORDA-ACO_37582_2013

PATIENT
  Age: 60 Year
  Sex: Female
  Weight: 64.4 kg

DRUGS (3)
  1. AMPYRA [Suspect]
     Indication: GAIT DISTURBANCE
     Dosage: 10 MG, Q 12 HRS
     Route: 048
     Dates: start: 20130722, end: 2013
  2. AMPYRA [Suspect]
     Indication: MULTIPLE SCLEROSIS
  3. NITROFURANTOIN [Concomitant]
     Indication: PRODUCT USED FOR UNKNOWN INDICATION
     Dosage: 50 MG, QD
     Route: 048

REACTIONS (4)
  - Tremor [Recovered/Resolved]
  - Dyspepsia [Recovered/Resolved]
  - Paraesthesia [Recovered/Resolved]
  - Drug dose omission [Unknown]
